FAERS Safety Report 15711388 (Version 3)
Quarter: 2018Q4

REPORT INFORMATION
  Report Type: Report from Study
  Country: US (occurrence: US)
  Receive Date: 20181211
  Receipt Date: 20181225
  Transmission Date: 20190205
  Serious: Yes (Other)
  Sender: FDA-Public Use
  Company Number: PHEH2018US051470

PATIENT
  Sex: Male

DRUGS (1)
  1. GLEEVEC [Suspect]
     Active Substance: IMATINIB MESYLATE
     Indication: PRODUCT USED FOR UNKNOWN INDICATION
     Dosage: 400 MG, UNK
     Route: 065

REACTIONS (6)
  - Vocal cord dysfunction [Unknown]
  - Muscle disorder [Unknown]
  - Immunosuppression [Unknown]
  - Hypokinesia [Unknown]
  - Back pain [Unknown]
  - Pain in extremity [Unknown]
